FAERS Safety Report 15365182 (Version 1)
Quarter: 2018Q3

REPORT INFORMATION
  Report Type: Spontaneous
  Country: US (occurrence: US)
  Receive Date: 20180910
  Receipt Date: 20180910
  Transmission Date: 20181010
  Serious: No
  Sender: FDA-Public Use
  Company Number: US-ZYDUS-018634

PATIENT
  Age: 83 Year
  Sex: Female

DRUGS (1)
  1. MELOXICAM. [Suspect]
     Active Substance: MELOXICAM
     Indication: ARTHRITIS
     Route: 048
     Dates: start: 201710

REACTIONS (1)
  - Feeling abnormal [Recovered/Resolved]

NARRATIVE: CASE EVENT DATE: 201710
